FAERS Safety Report 15964483 (Version 1)
Quarter: 2019Q1

REPORT INFORMATION
  Report Type: Spontaneous
  Country: US (occurrence: US)
  Receive Date: 20190215
  Receipt Date: 20190215
  Transmission Date: 20190417
  Serious: No
  Sender: FDA-Public Use
  Company Number: US-BIOGEN-2015BI076205

PATIENT
  Age: 65 Year
  Sex: Female

DRUGS (2)
  1. TECFIDERA [Suspect]
     Active Substance: DIMETHYL FUMARATE
     Dosage: MAINTENANCE DOSE
     Route: 048
     Dates: start: 20140225
  2. TECFIDERA [Suspect]
     Active Substance: DIMETHYL FUMARATE
     Indication: MULTIPLE SCLEROSIS
     Dosage: MAINTENANCE DOSE
     Route: 048
     Dates: start: 20140101

REACTIONS (6)
  - Hepatomegaly [Unknown]
  - Multiple sclerosis [Unknown]
  - Eye pruritus [Unknown]
  - Flushing [Recovered/Resolved]
  - Splenomegaly [Unknown]
  - Balance disorder [Unknown]

NARRATIVE: CASE EVENT DATE: 20150526
